FAERS Safety Report 7347359-3 (Version None)
Quarter: 2011Q1

REPORT INFORMATION
  Report Type: 
  Country: None (occurrence: None)
  Receive Date: 20110311
  Receipt Date: 20110303
  Transmission Date: 20110831
  Serious: Yes (Other)
  Sender: FDA-Public Use
  Company Number: BR-ROCHE-763279

PATIENT
  Sex: Female

DRUGS (2)
  1. ACTEMRA [Suspect]
     Indication: RHEUMATOID ARTHRITIS
     Dosage: FORM: INFUSION
     Route: 065
     Dates: start: 20100501
  2. ACTEMRA [Suspect]
     Route: 065
     Dates: end: 20110201

REACTIONS (3)
  - CAPILLARY FRAGILITY [None]
  - POLYARTHRITIS [None]
  - RASH MACULAR [None]
